FAERS Safety Report 13133098 (Version 1)
Quarter: 2017Q1

REPORT INFORMATION
  Report Type: Spontaneous
  Country: US (occurrence: US)
  Receive Date: 20170120
  Receipt Date: 20170120
  Transmission Date: 20170428
  Serious: No
  Sender: FDA-Public Use
  Company Number: US-TEVA-670656USA

PATIENT
  Sex: Male

DRUGS (1)
  1. MIRTAZAPINE. [Suspect]
     Active Substance: MIRTAZAPINE

REACTIONS (3)
  - Drug effect incomplete [Unknown]
  - Therapeutic response unexpected [Unknown]
  - Product use issue [Unknown]
